FAERS Safety Report 9219583 (Version 1)
Quarter: 2013Q1

REPORT INFORMATION
  Report Type: Spontaneous
  Country: US (occurrence: None)
  Receive Date: 20120830
  Receipt Date: 20120830
  Transmission Date: 20140127
  Serious: Yes (Other)
  Sender: FDA-Public Use
  Company Number: PHEH2011US08189

PATIENT
  Age: 61 Year
  Sex: Female
  Weight: 83.9 kg

DRUGS (5)
  1. EXFORGE (VALSARTAN, AMLODIPINE) UNKNOWN [Suspect]
  2. REMICADE (INFLIXIMAB) [Suspect]
     Route: 042
     Dates: start: 2005
  3. PROZAC (FLUOXETINE HYDROCHLORIDE) [Concomitant]
  4. VITAMIN D (ERGOCALCIFEROL) [Concomitant]
  5. CRESTOR (ROSUVASTATIN CALCIUM) [Concomitant]

REACTIONS (1)
  - Type 2 diabetes mellitus [None]
